FAERS Safety Report 21984209 (Version 1)
Quarter: 2023Q1

REPORT INFORMATION
  Report Type: Spontaneous
  Country: IT (occurrence: None)
  Receive Date: 20230213
  Receipt Date: 20230213
  Transmission Date: 20230417
  Serious: Yes (Other)
  Sender: FDA-Public Use
  Company Number: 2023A032328

PATIENT
  Age: 60 Year
  Sex: Male

DRUGS (1)
  1. IMFINZI [Suspect]
     Active Substance: DURVALUMAB
     Indication: Lung neoplasm malignant
     Dosage: 1500.0MG UNKNOWN
     Route: 042
     Dates: start: 20220713, end: 20221006

REACTIONS (5)
  - Asthenia [Recovering/Resolving]
  - Thyroid disorder [Recovering/Resolving]
  - Hypotension [Recovering/Resolving]
  - Addison^s disease [Recovering/Resolving]
  - Decreased appetite [Recovering/Resolving]

NARRATIVE: CASE EVENT DATE: 20221104
